FAERS Safety Report 10208817 (Version 1)
Quarter: 2014Q2

REPORT INFORMATION
  Report Type: Report from Study
  Country: TW (occurrence: TW)
  Receive Date: 20140530
  Receipt Date: 20140530
  Transmission Date: 20141212
  Serious: Yes (Hospitalization)
  Sender: FDA-Public Use
  Company Number: TW-009507513-1405TWN014782

PATIENT
  Age: 78 Year
  Sex: Female

DRUGS (2)
  1. MK-0000 (281) [Suspect]
  2. FOSAMAX [Suspect]
     Indication: OSTEOPOROSIS
     Dosage: UNK, QW
     Route: 048
     Dates: start: 20140402

REACTIONS (1)
  - Cough [Recovering/Resolving]
